FAERS Safety Report 15132246 (Version 2)
Quarter: 2018Q3

REPORT INFORMATION
  Report Type: Spontaneous
  Country: US (occurrence: US)
  Receive Date: 20180711
  Receipt Date: 20180712
  Transmission Date: 20181010
  Serious: Yes (Hospitalization, Other)
  Sender: FDA-Public Use
  Company Number: US-CELGENEUS-USA-20180701529

PATIENT
  Age: 59 Year
  Sex: Male
  Weight: 86.71 kg

DRUGS (1)
  1. POMALYST [Suspect]
     Active Substance: POMALIDOMIDE
     Indication: PLASMA CELL MYELOMA
     Dosage: 2 MILLIGRAM
     Route: 048
     Dates: start: 201803

REACTIONS (2)
  - Catheter site infection [Unknown]
  - Renal failure [Unknown]

NARRATIVE: CASE EVENT DATE: 20180616
